FAERS Safety Report 5045485-5 (Version None)
Quarter: 2006Q2

REPORT INFORMATION
  Report Type: 
  Country: None (occurrence: None)
  Receive Date: 20060601
  Receipt Date: 20060403
  Transmission Date: 20061013
  Serious: No
  Sender: FDA-Public Use
  Company Number: 2006-BP-03658BP

PATIENT
  Age: 64 Year
  Sex: Female

DRUGS (4)
  1. SPIRIVA [Suspect]
     Indication: CHRONIC OBSTRUCTIVE PULMONARY DISEASE
     Dosage: 18 MCG (18 MCG, QD), IH
     Route: 055
     Dates: start: 20060328
  2. SINGULAIR [Concomitant]
  3. ADVAIR (SERETIDE /01420901/) [Concomitant]
  4. ASPIRIN [Concomitant]

REACTIONS (2)
  - HAEMATOMA [None]
  - SKIN DISORDER [None]
